FAERS Safety Report 8067712-2 (Version None)
Quarter: 2012Q1

REPORT INFORMATION
  Report Type: 
  Country: None (occurrence: None)
  Receive Date: 20120124
  Receipt Date: 20120118
  Transmission Date: 20120608
  Serious: Yes (Hospitalization)
  Sender: FDA-Public Use
  Company Number: FR-PFIZER INC-2012013606

PATIENT
  Age: 78 Year
  Sex: Female

DRUGS (11)
  1. ACETAMINOPHEN [Suspect]
     Indication: PAIN
     Dosage: 1 G, 3X/DAY
     Route: 048
     Dates: end: 20110930
  2. DIGOXIN [Concomitant]
  3. LOSARTAN POTASSIUM AND HYDROCHLOROTHIAZIDE [Concomitant]
     Indication: HYPERTENSION
     Dosage: 1 DF, 1X/DAY
     Route: 048
     Dates: end: 20110930
  4. PREVISCAN [Suspect]
     Indication: PROPHYLAXIS
     Dosage: 0.5 DF, 1X/DAY
     Route: 048
     Dates: start: 20110906, end: 20110925
  5. LOVENOX [Suspect]
     Indication: PROPHYLAXIS
     Dosage: 2 DOSAGE FORMS ONCE DAILY
     Route: 058
     Dates: start: 20110829, end: 20110929
  6. HYPERIUM [Concomitant]
  7. ATARAX [Concomitant]
     Indication: ANXIETY
     Dosage: 100 MG, 2X/DAY
     Route: 048
     Dates: end: 20110930
  8. LANTUS [Concomitant]
  9. ATORVASTATIN CALCIUM [Suspect]
     Indication: HYPERCHOLESTEROLAEMIA
     Dosage: 20 MG, 1X/DAY
     Route: 048
     Dates: end: 20110930
  10. ACETAMINOPHEN [Suspect]
     Indication: PAIN
     Dosage: 1 DF, 3X/DAY
     Route: 048
     Dates: end: 20110930
  11. ALLOPURINOL [Concomitant]
     Dosage: 100 MG, UNK

REACTIONS (2)
  - ANAEMIA [None]
  - HAEMATOMA [None]
